FAERS Safety Report 22010123 (Version 1)
Quarter: 2023Q1

REPORT INFORMATION
  Report Type: Spontaneous
  Country: US (occurrence: US)
  Receive Date: 20230220
  Receipt Date: 20230220
  Transmission Date: 20230417
  Serious: No
  Sender: FDA-Public Use
  Company Number: US-TEVA-2023-US-2852267

PATIENT
  Age: 91 Year
  Sex: Female

DRUGS (1)
  1. CLONIDINE [Suspect]
     Active Substance: CLONIDINE
     Indication: Hypertension
     Dosage: 0.2 MG/24HR
     Route: 062
     Dates: start: 1996

REACTIONS (3)
  - Skin atrophy [Not Recovered/Not Resolved]
  - Hypotonia [Not Recovered/Not Resolved]
  - Product administration error [Unknown]
